FAERS Safety Report 5528214-8 (Version None)
Quarter: 2007Q4

REPORT INFORMATION
  Report Type: 
  Country: None (occurrence: None)
  Receive Date: 20071128
  Receipt Date: 20071122
  Transmission Date: 20080405
  Serious: Yes (Other)
  Sender: FDA-Public Use
  Company Number: GB-PFIZER INC-2007098770

PATIENT
  Age: 39 Year
  Sex: Female

DRUGS (1)
  1. CHAMPIX [Suspect]
     Indication: SMOKING CESSATION THERAPY
     Route: 048
     Dates: start: 20071031, end: 20071105

REACTIONS (5)
  - ARTHRALGIA [None]
  - DEPRESSED MOOD [None]
  - EYE PAIN [None]
  - INSOMNIA [None]
  - VIOLENCE-RELATED SYMPTOM [None]
